FAERS Safety Report 17101131 (Version 1)
Quarter: 2019Q4

REPORT INFORMATION
  Report Type: Spontaneous
  Country: US (occurrence: US)
  Receive Date: 20191202
  Receipt Date: 20191202
  Transmission Date: 20200122
  Serious: No
  Sender: FDA-Public Use
  Company Number: US-SA-2019SA329551

PATIENT
  Age: 61 Year
  Sex: Female

DRUGS (1)
  1. SOLIQUA 100/33 [Suspect]
     Active Substance: INSULIN GLARGINE\LIXISENATIDE
     Dosage: 34 U, QD
     Route: 065

REACTIONS (3)
  - Injection site rash [Recovering/Resolving]
  - Injection site urticaria [Recovering/Resolving]
  - Incorrect dose administered by device [Unknown]
